FAERS Safety Report 11395604 (Version 1)
Quarter: 2015Q3

REPORT INFORMATION
  Report Type: Spontaneous
  Country: US (occurrence: None)
  Receive Date: 20150817
  Receipt Date: 20150817
  Transmission Date: 20151125
  Serious: No
  Sender: FDA-Public Use
  Company Number: None

PATIENT
  Age: 34 Year
  Sex: Female
  Weight: 58.97 kg

DRUGS (4)
  1. SERTRALINE [Concomitant]
     Active Substance: SERTRALINE HYDROCHLORIDE
  2. TRAZODONE [Suspect]
     Active Substance: TRAZODONE HYDROCHLORIDE
     Indication: ANXIETY
     Dosage: 1 PILL
     Route: 048
     Dates: start: 20150805, end: 20150814
  3. MULTIVITAMIN [Concomitant]
     Active Substance: VITAMINS
  4. TRAZODONE [Suspect]
     Active Substance: TRAZODONE HYDROCHLORIDE
     Indication: INSOMNIA
     Dosage: 1 PILL
     Route: 048
     Dates: start: 20150805, end: 20150814

REACTIONS (6)
  - Product quality issue [None]
  - Anxiety [None]
  - Insomnia [None]
  - Decreased appetite [None]
  - Product substitution issue [None]
  - Panic attack [None]

NARRATIVE: CASE EVENT DATE: 20150807
